FAERS Safety Report 8155468-4 (Version None)
Quarter: 2012Q1

REPORT INFORMATION
  Report Type: 
  Country: None (occurrence: None)
  Receive Date: 20120222
  Receipt Date: 20120213
  Transmission Date: 20120608
  Serious: Yes (Other)
  Sender: FDA-Public Use
  Company Number: DE-ELI_LILLY_AND_COMPANY-DE201202003672

PATIENT
  Sex: Female

DRUGS (5)
  1. AMLODIPINE BESYLATE [Concomitant]
  2. ASPIRIN [Concomitant]
  3. METOPROLOL TARTRATE [Concomitant]
  4. FORTEO [Suspect]
     Indication: OSTEOPOROSIS
     Dosage: UNK, QD
     Route: 058
     Dates: start: 20111125
  5. HCT BETA [Concomitant]

REACTIONS (3)
  - INTESTINAL PERFORATION [None]
  - CONSTIPATION [None]
  - HEADACHE [None]
